FAERS Safety Report 6821082-3 (Version None)
Quarter: 2010Q3

REPORT INFORMATION
  Report Type: 
  Country: None (occurrence: None)
  Receive Date: 20100707
  Receipt Date: 20071106
  Transmission Date: 20110219
  Serious: Yes (Other)
  Sender: FDA-Public Use
  Company Number: US-PFIZER INC-2007085495

PATIENT
  Sex: Female
  Weight: 90.7 kg

DRUGS (4)
  1. ZOLOFT [Suspect]
     Indication: ANXIETY
     Dates: start: 19880101
  2. ZOLOFT [Suspect]
     Indication: DEPRESSION
  3. CHANTIX [Suspect]
     Indication: SMOKING CESSATION THERAPY
     Dates: start: 20070101
  4. AVAPRO [Suspect]
     Indication: HYPERTENSION
     Dates: start: 20070801, end: 20070901

REACTIONS (6)
  - HYPERTENSION [None]
  - PRURITUS [None]
  - RASH [None]
  - RASH MACULAR [None]
  - SKIN BURNING SENSATION [None]
  - URTICARIA [None]
